FAERS Safety Report 8314425-5 (Version None)
Quarter: 2012Q2

REPORT INFORMATION
  Report Type: 
  Country: None (occurrence: None)
  Receive Date: 20120426
  Receipt Date: 20120419
  Transmission Date: 20120825
  Serious: Yes (Hospitalization)
  Sender: FDA-Public Use
  Company Number: FR-ABBOTT-12P-056-0928103-00

PATIENT
  Age: 70 Year
  Sex: Female

DRUGS (6)
  1. IMOVANE [Suspect]
     Indication: INSOMNIA
     Dosage: 7.5 MG DAILY
     Route: 048
     Dates: end: 20111108
  2. QUETIAPINE [Suspect]
     Indication: DEPRESSION
     Dosage: 300 MG DAILY
     Route: 048
     Dates: start: 20111108, end: 20111108
  3. TRIHEXYPHENIDYL HYDROCHLORIDE [Concomitant]
     Indication: PRODUCT USED FOR UNKNOWN INDICATION
     Dates: start: 20111104, end: 20111108
  4. SECTRAL [Concomitant]
     Indication: PRODUCT USED FOR UNKNOWN INDICATION
  5. OXAZEPAM [Suspect]
     Indication: ANXIETY
     Route: 048
     Dates: start: 20111107, end: 20111109
  6. DEPAKOTE [Suspect]
     Indication: PRODUCT USED FOR UNKNOWN INDICATION
     Route: 048
     Dates: start: 20111107, end: 20111108

REACTIONS (1)
  - LOSS OF CONSCIOUSNESS [None]
